FAERS Safety Report 5041923-2 (Version None)
Quarter: 2006Q2

REPORT INFORMATION
  Report Type: 
  Country: None (occurrence: None)
  Receive Date: 20060630
  Receipt Date: 20060615
  Transmission Date: 20061013
  Serious: Yes (Hospitalization)
  Sender: FDA-Public Use
  Company Number: 06-000543

PATIENT
  Age: 76 Year
  Sex: Female

DRUGS (1)
  1. DURICEF [Suspect]
     Indication: INFECTION
     Dosage: 500 MG, ORAL
     Route: 048
     Dates: start: 20060609

REACTIONS (4)
  - DIARRHOEA [None]
  - NAUSEA [None]
  - VOMITING [None]
  - WHITE BLOOD CELL COUNT DECREASED [None]
